FAERS Safety Report 25284123 (Version 1)
Quarter: 2025Q2

REPORT INFORMATION
  Report Type: Spontaneous
  Country: US (occurrence: US)
  Receive Date: 20250508
  Receipt Date: 20250508
  Transmission Date: 20250716
  Serious: No
  Sender: PRASCO
  Company Number: US-Prasco Laboratories-PRAS20250199

PATIENT
  Sex: Female

DRUGS (2)
  1. ESTRADIOL [Suspect]
     Active Substance: ESTRADIOL
     Indication: Product used for unknown indication
     Route: 067
  2. SOAP [Suspect]
     Active Substance: SOAP
     Indication: Prophylaxis
     Route: 065

REACTIONS (1)
  - Vulvovaginal burning sensation [Unknown]
